FAERS Safety Report 14561031 (Version 2)
Quarter: 2018Q1

REPORT INFORMATION
  Report Type: Spontaneous
  Country: US (occurrence: US)
  Receive Date: 20180222
  Receipt Date: 20180305
  Transmission Date: 20180509
  Serious: Yes (Hospitalization, Other)
  Sender: FDA-Public Use
  Company Number: US-TEVA-2018-US-861017

PATIENT
  Age: 41 Year
  Sex: Female

DRUGS (2)
  1. FENTORA [Suspect]
     Active Substance: FENTANYL CITRATE
     Indication: PAIN
  2. FENTORA [Suspect]
     Active Substance: FENTANYL CITRATE
     Indication: TRIGEMINAL NEURALGIA
     Route: 065

REACTIONS (4)
  - Craniotomy [Unknown]
  - Feeding disorder [Recovering/Resolving]
  - Seizure [Unknown]
  - Nerve block [Unknown]

NARRATIVE: CASE EVENT DATE: 20180222
